FAERS Safety Report 8504769-6 (Version None)
Quarter: 2012Q3

REPORT INFORMATION
  Report Type: 
  Country: None (occurrence: None)
  Receive Date: 20120712
  Receipt Date: 20120702
  Transmission Date: 20120928
  Serious: Yes (Hospitalization)
  Sender: FDA-Public Use
  Company Number: DE-BIOGENIDEC-2012BI023837

PATIENT
  Age: 39 Year
  Sex: Female
  Weight: 65 kg

DRUGS (2)
  1. ANALGESIC (NOS) [Concomitant]
     Indication: MULTIPLE SCLEROSIS
  2. AVONEX [Suspect]
     Indication: MULTIPLE SCLEROSIS
     Route: 030
     Dates: start: 20050301

REACTIONS (1)
  - BLINDNESS UNILATERAL [None]
